FAERS Safety Report 4341822-5 (Version None)
Quarter: 2004Q2

REPORT INFORMATION
  Report Type: 
  Country: None (occurrence: None)
  Receive Date: 20040416
  Receipt Date: 20040407
  Transmission Date: 20050107
  Serious: Yes (Death)
  Sender: FDA-Public Use
  Company Number: 200403610

PATIENT
  Age: 21 Year
  Sex: Male

DRUGS (1)
  1. TYLENOL COLD MEDICATION [Suspect]

REACTIONS (6)
  - COUGH [None]
  - DRUG HYPERSENSITIVITY [None]
  - MENINGOCOCCAL INFECTION [None]
  - PYREXIA [None]
  - RASH [None]
  - SUDDEN DEATH [None]
